FAERS Safety Report 13199209 (Version 1)
Quarter: 2017Q1

REPORT INFORMATION
  Report Type: Spontaneous
  Country: US (occurrence: US)
  Receive Date: 20170208
  Receipt Date: 20170208
  Transmission Date: 20170428
  Serious: Yes (Other)
  Sender: FDA-Public Use
  Company Number: US-SAOL THERAPEUTICS-2017SAO00225

PATIENT
  Age: 42 Year
  Sex: Female

DRUGS (7)
  1. MORPHINE (COMPOUNDED) [Suspect]
     Active Substance: MORPHINE
     Dosage: 7.285 MG, \DAY
     Route: 037
  2. BUPIVACAINE. [Suspect]
     Active Substance: BUPIVACAINE
     Dosage: 4.246 MG, \DAY
     Route: 037
  3. BACLOFEN. [Suspect]
     Active Substance: BACLOFEN
     Indication: PAIN
     Dosage: 54.03 ?G, \DAY
     Route: 037
  4. BUPIVACAINE. [Suspect]
     Active Substance: BUPIVACAINE
     Route: 037
  5. FENTANYL. [Suspect]
     Active Substance: FENTANYL
     Route: 037
  6. BACLOFEN. [Suspect]
     Active Substance: BACLOFEN
     Dosage: 29.14 ?G, \DAY
     Route: 037
  7. FENTANYL. [Suspect]
     Active Substance: FENTANYL
     Dosage: 999.1 ?G, \DAY
     Route: 037

REACTIONS (12)
  - Cerebrospinal fluid leakage [Recovered/Resolved]
  - Post lumbar puncture syndrome [Unknown]
  - Implant site pain [Unknown]
  - Swelling [Unknown]
  - Off label use [Unknown]
  - Implant site dehiscence [Unknown]
  - Weight increased [Unknown]
  - Pain [Unknown]
  - Tooth loss [Unknown]
  - Therapeutic response unexpected [Unknown]
  - Peripheral swelling [Unknown]
  - Device dislocation [Unknown]

NARRATIVE: CASE EVENT DATE: 20131217
